FAERS Safety Report 8991332 (Version 1)
Quarter: 2012Q4

REPORT INFORMATION
  Report Type: 
  Country: US (occurrence: US)
  Receive Date: 20121230
  Receipt Date: 20121230
  Transmission Date: 20130627
  Serious: Yes (Other)
  Sender: FDA-Public Use
  Company Number: US-ALEXION-A201200665

PATIENT
  Age: 35 Year
  Sex: Female

DRUGS (3)
  1. SOLIRIS 300MG [Suspect]
     Indication: HELLP SYNDROME
     Dosage: 1200 mg, qw
     Route: 042
     Dates: start: 201203
  2. SOLIRIS 300MG [Suspect]
     Indication: PRE-ECLAMPSIA
  3. SOLIRIS 300MG [Suspect]
     Indication: OFF LABEL USE

REACTIONS (7)
  - Premature delivery [Recovered/Resolved]
  - Condition aggravated [Recovered/Resolved]
  - Blood pressure increased [Recovered/Resolved]
  - Placental disorder [Recovered/Resolved]
  - Anaemia [Recovered/Resolved]
  - Laboratory test abnormal [Recovered/Resolved]
  - Exposure during pregnancy [Recovered/Resolved]
